FAERS Safety Report 7397262-8 (Version None)
Quarter: 2011Q2

REPORT INFORMATION
  Report Type: 
  Country: None (occurrence: None)
  Receive Date: 20110406
  Receipt Date: 20110329
  Transmission Date: 20111010
  Serious: Yes (Other)
  Sender: FDA-Public Use
  Company Number: RU-ASTRAZENECA-2011SE18007

PATIENT
  Age: 32 Year
  Sex: Male
  Weight: 70 kg

DRUGS (4)
  1. PHENAZEPAM [Concomitant]
     Indication: PREMEDICATION
  2. RELANIUM [Concomitant]
     Indication: PREMEDICATION
     Route: 058
  3. MARCAINE [Suspect]
     Indication: SPINAL ANAESTHESIA
     Route: 037
     Dates: start: 20110323, end: 20110323
  4. MARCAINE [Suspect]
     Dosage: 20 MGS ONCE, IN 20 MIN AFTER THE FIRST DOSE
     Route: 037
     Dates: start: 20110323, end: 20110323

REACTIONS (2)
  - DRUG INEFFECTIVE [None]
  - DRUG EFFECT DELAYED [None]
